FAERS Safety Report 11274624 (Version 1)
Quarter: 2015Q3

REPORT INFORMATION
  Report Type: Spontaneous
  Country: US (occurrence: US)
  Receive Date: 20150715
  Receipt Date: 20150715
  Transmission Date: 20151125
  Serious: Yes (Hospitalization, Other)
  Sender: FDA-Public Use
  Company Number: US-AMGEN-USASP2015069371

PATIENT
  Sex: Female

DRUGS (5)
  1. RITUXAN [Concomitant]
     Active Substance: RITUXIMAB
     Dosage: UNK
     Dates: start: 201402, end: 201402
  2. ARAVA [Suspect]
     Active Substance: LEFLUNOMIDE
     Indication: RHEUMATOID ARTHRITIS
     Dosage: 1 TABLET DAILY
     Route: 048
     Dates: start: 2008
  3. ENBREL [Suspect]
     Active Substance: ETANERCEPT
     Indication: RHEUMATOID ARTHRITIS
     Dosage: UNK
     Route: 065
  4. HUMIRA [Suspect]
     Active Substance: ADALIMUMAB
     Indication: RHEUMATOID ARTHRITIS
     Dosage: UNK
     Route: 065
  5. XELJANZ [Suspect]
     Active Substance: TOFACITINIB CITRATE
     Indication: RHEUMATOID ARTHRITIS
     Dosage: 5 MG, 2 TIMES/WK
     Route: 048
     Dates: start: 2014

REACTIONS (13)
  - Amnesia [Unknown]
  - Asthma [Unknown]
  - Drug ineffective [Unknown]
  - Neoplasm [Unknown]
  - Neuropathy peripheral [Unknown]
  - Memory impairment [Unknown]
  - Pain [Unknown]
  - Drug effect decreased [Unknown]
  - Malaise [Unknown]
  - Knee arthroplasty [Unknown]
  - Drug hypersensitivity [Unknown]
  - Frustration [Unknown]
  - Osteomyelitis [Unknown]

NARRATIVE: CASE EVENT DATE: 2014
